FAERS Safety Report 24102894 (Version 3)
Quarter: 2025Q3

REPORT INFORMATION
  Report Type: Spontaneous
  Country: EU (occurrence: EU)
  Receive Date: 20240717
  Receipt Date: 20250829
  Transmission Date: 20251021
  Serious: Yes (Other)
  Sender: BRISTOL-MYERS SQUIBB COMPANY
  Company Number: EU-009507513-2406ITA008519

PATIENT
  Sex: Male

DRUGS (3)
  1. LENALIDOMIDE [Interacting]
     Active Substance: LENALIDOMIDE
     Indication: Plasma cell myeloma
  2. DORAVIRINE [Interacting]
     Active Substance: DORAVIRINE
     Indication: HIV infection
     Route: 048
  3. TENOFOVIR [Concomitant]
     Active Substance: TENOFOVIR
     Indication: HIV infection
     Route: 048

REACTIONS (2)
  - Nephropathy [Unknown]
  - Drug interaction [Unknown]
